FAERS Safety Report 7094317-2 (Version None)
Quarter: 2010Q4

REPORT INFORMATION
  Report Type: 
  Country: None (occurrence: None)
  Receive Date: 20101110
  Receipt Date: 20100208
  Transmission Date: 20110411
  Serious: Yes (Hospitalization, Other)
  Sender: FDA-Public Use
  Company Number: US-AMGEN-USASP2010003679

PATIENT

DRUGS (1)
  1. NPLATE [Suspect]

REACTIONS (1)
  - CEREBROVASCULAR ACCIDENT [None]
